FAERS Safety Report 8324875-9 (Version None)
Quarter: 2012Q2

REPORT INFORMATION
  Report Type: 
  Country: None (occurrence: None)
  Receive Date: 20120501
  Receipt Date: 20120426
  Transmission Date: 20120825
  Serious: Yes (Other)
  Sender: FDA-Public Use
  Company Number: US-PFIZER INC-2012082962

PATIENT
  Sex: Female

DRUGS (5)
  1. VALIUM [Concomitant]
     Dosage: 5 MG, 3X/DAY
  2. NUVIGIL [Concomitant]
     Dosage: 150 MG
  3. LYRICA [Suspect]
     Dosage: 75 MG, 3X/DAY
  4. NEURONTIN [Concomitant]
     Dosage: 300 MG, 3X/DAY
  5. LORTAB [Concomitant]
     Dosage: 10/500, 3X/DAY

REACTIONS (2)
  - GENERAL PHYSICAL HEALTH DETERIORATION [None]
  - LIMB DISCOMFORT [None]
